FAERS Safety Report 9188676 (Version 1)
Quarter: 2013Q1

REPORT INFORMATION
  Report Type: Spontaneous
  Country: IE (occurrence: IE)
  Receive Date: 20130325
  Receipt Date: 20130325
  Transmission Date: 20140127
  Serious: Yes (Hospitalization)
  Sender: FDA-Public Use
  Company Number: IE-ELI_LILLY_AND_COMPANY-IE201303005308

PATIENT
  Sex: Female

DRUGS (6)
  1. FORSTEO [Suspect]
     Indication: OSTEOPOROSIS
     Dosage: 20 UG, QD
     Route: 058
     Dates: start: 20110621
  2. TRADOL [Concomitant]
  3. PONSTAN [Concomitant]
  4. LYRICA [Concomitant]
  5. MOTILIUM [Concomitant]
  6. ZOTON [Concomitant]

REACTIONS (3)
  - Hernia [Unknown]
  - Blood iron decreased [Unknown]
  - Blood sodium decreased [Unknown]
